FAERS Safety Report 4731268-X (Version None)
Quarter: 2005Q3

REPORT INFORMATION
  Report Type: 
  Country: None (occurrence: None)
  Receive Date: 20050802
  Receipt Date: 20050722
  Transmission Date: 20060218
  Serious: Yes (Other)
  Sender: FDA-Public Use
  Company Number: FR-ABBOTT-05P-056-0306419-00

PATIENT
  Sex: Male
  Weight: 90 kg

DRUGS (1)
  1. LIPANTHYL TABLETS [Suspect]
     Indication: HYPERTRIGLYCERIDAEMIA
     Route: 048
     Dates: start: 20050515, end: 20050515

REACTIONS (11)
  - ARTHRALGIA [None]
  - ASTHENIA [None]
  - BLOOD COUNT ABNORMAL [None]
  - HEADACHE [None]
  - LIVER FUNCTION TEST ABNORMAL [None]
  - MYALGIA [None]
  - PARESIS [None]
  - PYREXIA [None]
  - SMOOTH MUSCLE ANTIBODY POSITIVE [None]
  - THROMBOCYTOPENIA [None]
  - TRANSAMINASES INCREASED [None]
